FAERS Safety Report 9121954 (Version 1)
Quarter: 2013Q1

REPORT INFORMATION
  Report Type: Spontaneous
  Country: US (occurrence: US)
  Receive Date: 20130114
  Receipt Date: 20130114
  Transmission Date: 20140127
  Serious: No
  Sender: FDA-Public Use
  Company Number: US-TEVA-364130USA

PATIENT
  Sex: Female

DRUGS (1)
  1. CROMOGLICIC ACID [Suspect]
     Dosage: INHALATION SOLUTION

REACTIONS (2)
  - Dysphonia [Unknown]
  - Palpitations [Unknown]
